FAERS Safety Report 21349787 (Version 1)
Quarter: 2022Q3

REPORT INFORMATION
  Report Type: Spontaneous
  Country: US (occurrence: US)
  Receive Date: 20220919
  Receipt Date: 20220919
  Transmission Date: 20221026
  Serious: No
  Sender: FDA-Public Use
  Company Number: US-VERTEX PHARMACEUTICALS-2022-013445

PATIENT

DRUGS (1)
  1. TRIKAFTA [Suspect]
     Active Substance: ELEXACAFTOR\IVACAFTOR\TEZACAFTOR
     Indication: Cystic fibrosis
     Dosage: FREQ UNK
     Route: 048

REACTIONS (6)
  - Irritability [Unknown]
  - Aggression [Unknown]
  - Anger [Unknown]
  - Depression [Unknown]
  - Social avoidant behaviour [Unknown]
  - Mental disorder [Unknown]
